FAERS Safety Report 13499953 (Version 1)
Quarter: 2017Q2

REPORT INFORMATION
  Report Type: Spontaneous
  Country: US (occurrence: US)
  Receive Date: 20170501
  Receipt Date: 20170501
  Transmission Date: 20170830
  Serious: No
  Sender: FDA-Public Use
  Company Number: US-PRINSTON PHARMACEUTICAL INC.-2017PRN00125

PATIENT
  Sex: Female
  Weight: 71.2 kg

DRUGS (7)
  1. OPANA ER [Suspect]
     Active Substance: OXYMORPHONE HYDROCHLORIDE
     Indication: PAIN
     Dosage: 5 MG, UNK
     Route: 048
     Dates: start: 200810
  2. BLACK CO HASH [Concomitant]
  3. GABAPENTIN. [Concomitant]
     Active Substance: GABAPENTIN
  4. CELEBREX [Suspect]
     Active Substance: CELECOXIB
     Indication: PAIN
     Dosage: 200 MG, 1X/DAY
     Route: 048
     Dates: start: 200010
  5. SIMVASTATIN. [Concomitant]
     Active Substance: SIMVASTATIN
  6. CYCLOBENZAPRINE HYDROCHLORIDE. [Suspect]
     Active Substance: CYCLOBENZAPRINE HYDROCHLORIDE
     Indication: PAIN
     Dosage: 10 MG, 3X/DAY
     Route: 048
     Dates: start: 200503
  7. VICODIN [Suspect]
     Active Substance: ACETAMINOPHEN\HYDROCODONE BITARTRATE
     Indication: PAIN
     Dosage: 5325 UNK, UNK
     Route: 048
     Dates: start: 201503

REACTIONS (7)
  - Condition aggravated [Unknown]
  - Dysphonia [Unknown]
  - Hand deformity [Unknown]
  - Peripheral swelling [Unknown]
  - Insomnia [Unknown]
  - Euphoric mood [Unknown]
  - Logorrhoea [Unknown]
